FAERS Safety Report 5936134-X (Version None)
Quarter: 2008Q4

REPORT INFORMATION
  Report Type: 
  Country: None (occurrence: None)
  Receive Date: 20081028
  Receipt Date: 20070601
  Transmission Date: 20090506
  Serious: Yes (Disabling)
  Sender: FDA-Public Use
  Company Number: 2007-159651-NL

PATIENT
  Age: 14 Month

DRUGS (3)
  1. PANCURONIUM [Suspect]
     Indication: MECHANICAL VENTILATION
  2. AMINOGLYCOSIDE [Concomitant]
  3. LOOP DIURETICS [Concomitant]

REACTIONS (1)
  - DEAFNESS NEUROSENSORY [None]
